FAERS Safety Report 5288894-1 (Version None)
Quarter: 2007Q1

REPORT INFORMATION
  Report Type: 
  Country: None (occurrence: None)
  Receive Date: 20070117
  Receipt Date: 20061218
  Transmission Date: 20070707
  Serious: No
  Sender: FDA-Public Use
  Company Number: 2006US002953

PATIENT
  Sex: Female

DRUGS (1)
  1. VAPRISOL [Suspect]
     Indication: DRUG USE FOR UNKNOWN INDICATION
     Dosage: IV NOS
     Route: 042

REACTIONS (3)
  - HYPOAESTHESIA [None]
  - INJECTION SITE PHLEBITIS [None]
  - PARAESTHESIA [None]
